FAERS Safety Report 9753021 (Version 2)
Quarter: 2014Q1

REPORT INFORMATION
  Report Type: Spontaneous
  Country: US (occurrence: US)
  Receive Date: 20131213
  Receipt Date: 20140321
  Transmission Date: 20141002
  Serious: Yes (Other)
  Sender: FDA-Public Use
  Company Number: US-BAYER-2013-149426

PATIENT
  Age: 26 Year
  Sex: Male
  Weight: 79 kg

DRUGS (6)
  1. BAYER GENUINE ASPIRIN ORIGINAL STRENGTH [Suspect]
     Indication: ANALGESIC THERAPY
     Dosage: 2 DF, PRN
     Route: 048
     Dates: end: 2003
  2. SPIRIVA [Concomitant]
  3. OMEPRAZOLE [Concomitant]
  4. ADVAIR [Concomitant]
  5. LIPITOR [Concomitant]
  6. ALBUTEROL [Concomitant]

REACTIONS (3)
  - Gastric ulcer [None]
  - Cerebrovascular accident [None]
  - Unevaluable event [None]
